FAERS Safety Report 13741085 (Version 1)
Quarter: 2017Q3

REPORT INFORMATION
  Report Type: Spontaneous
  Country: KR (occurrence: KR)
  Receive Date: 20170711
  Receipt Date: 20170711
  Transmission Date: 20171127
  Serious: Yes (Hospitalization, Other)
  Sender: FDA-Public Use
  Company Number: KR-SUN PHARMACEUTICAL INDUSTRIES LTD-2015R1-105300

PATIENT
  Age: 65 Year
  Sex: Female

DRUGS (1)
  1. LITHIUM. [Suspect]
     Active Substance: LITHIUM
     Indication: BIPOLAR II DISORDER
     Dosage: 600 MG, QD
     Route: 065

REACTIONS (4)
  - Toxicity to various agents [Recovering/Resolving]
  - Myoclonus [Recovered/Resolved]
  - Ataxia [Recovering/Resolving]
  - Dysmetria [Recovering/Resolving]
